FAERS Safety Report 9386988 (Version 1)
Quarter: 2013Q3

REPORT INFORMATION
  Report Type: Spontaneous
  Country: PH (occurrence: PH)
  Receive Date: 20130708
  Receipt Date: 20130708
  Transmission Date: 20140515
  Serious: Yes (Other)
  Sender: FDA-Public Use
  Company Number: PH-009507513-1303PHL010516

PATIENT
  Age: 30 Year
  Sex: Male

DRUGS (6)
  1. PEG-INTRON REDIPEN [Suspect]
     Indication: HEPATITIS C
     Dosage: 100 MICROGRAM, QW,REDIPEN
     Route: 058
     Dates: start: 20130305, end: 2013
  2. PEG-INTRON REDIPEN [Suspect]
     Dosage: 100 MICROGRAM, QW,REDIPEN
     Route: 058
     Dates: start: 20130312, end: 2013
  3. PEG-INTRON REDIPEN [Suspect]
     Dosage: FULL DOSE
     Dates: start: 20130629
  4. REBETOL [Suspect]
     Indication: HEPATITIS C
     Dosage: 1200 MG, DAILY
     Route: 048
     Dates: start: 20130305
  5. REBETOL [Suspect]
     Dosage: 800 MG, QD
     Route: 048
     Dates: start: 2013, end: 2013
  6. REBETOL [Suspect]
     Dosage: FULL DOSE
     Route: 048
     Dates: start: 20130629

REACTIONS (4)
  - Full blood count abnormal [Unknown]
  - Blood bilirubin abnormal [Recovering/Resolving]
  - Blood creatinine increased [Unknown]
  - Neutrophil count decreased [Unknown]
